FAERS Safety Report 23220490 (Version 2)
Quarter: 2024Q3

REPORT INFORMATION
  Report Type: Report from Study
  Country: US (occurrence: US)
  Receive Date: 20231123
  Receipt Date: 20240708
  Transmission Date: 20241016
  Serious: Yes (Hospitalization, Other)
  Sender: ALEXION PHARMACEUTICALS
  Company Number: US-ALXN-A202309405AA

PATIENT
  Sex: Female

DRUGS (2)
  1. STRENSIQ [Suspect]
     Active Substance: ASFOTASE ALFA
     Indication: Hypophosphatasia
     Dosage: UNK
     Route: 065
  2. KEPPRA [Suspect]
     Active Substance: LEVETIRACETAM
     Indication: Muscle twitching
     Dosage: UNK, QD
     Route: 065

REACTIONS (7)
  - Fall [Unknown]
  - Head injury [Unknown]
  - Myoclonic epilepsy [Unknown]
  - Thyroid mass [Unknown]
  - Muscle twitching [Recovered/Resolved]
  - Hyperaesthesia [Unknown]
  - Headache [Unknown]
